FAERS Safety Report 13047970 (Version 1)
Quarter: 2016Q4

REPORT INFORMATION
  Report Type: Spontaneous
  Country: FR (occurrence: FR)
  Receive Date: 20161220
  Receipt Date: 20161220
  Transmission Date: 20170207
  Serious: Yes (Hospitalization, Other)
  Sender: FDA-Public Use
  Company Number: FR-PFIZER INC-2016583665

PATIENT
  Age: 73 Year
  Sex: Male

DRUGS (10)
  1. BOSULIF [Suspect]
     Active Substance: BOSUTINIB MONOHYDRATE
     Indication: CHRONIC MYELOID LEUKAEMIA
     Dosage: 1 DF, 1X/DAY
     Route: 048
     Dates: start: 201604
  2. PANTOPRAZOLE [Concomitant]
     Active Substance: PANTOPRAZOLE SODIUM
  3. ABILIFY [Concomitant]
     Active Substance: ARIPIPRAZOLE
  4. TERCIAN /00759301/ [Concomitant]
     Active Substance: CYAMEMAZINE
  5. SERTRALINE [Concomitant]
     Active Substance: SERTRALINE HYDROCHLORIDE
  6. MECIR [Concomitant]
     Active Substance: TAMSULOSIN HYDROCHLORIDE
  7. AMLOR [Concomitant]
     Active Substance: AMLODIPINE BESYLATE
     Dosage: 1 DF, 1X/DAY
     Route: 048
     Dates: end: 2016
  8. METFORMINE [Concomitant]
     Active Substance: METFORMIN HYDROCHLORIDE
  9. VALIUM [Concomitant]
     Active Substance: DIAZEPAM
  10. COVERSYL /00790702/ [Concomitant]
     Active Substance: PERINDOPRIL

REACTIONS (6)
  - Interstitial lung disease [Unknown]
  - Oedema [Unknown]
  - Oedema peripheral [Unknown]
  - Pericarditis [Unknown]
  - Weight increased [Recovering/Resolving]
  - Pleural effusion [Unknown]

NARRATIVE: CASE EVENT DATE: 2016
